FAERS Safety Report 15241372 (Version 1)
Quarter: 2018Q3

REPORT INFORMATION
  Report Type: Spontaneous
  Country: GB (occurrence: GB)
  Receive Date: 20180805
  Receipt Date: 20180805
  Transmission Date: 20181010
  Serious: Yes (Disabling)
  Sender: FDA-Public Use
  Company Number: GB-CONCORDIA PHARMACEUTICALS INC.-E2B_00015355

PATIENT
  Age: 80 Year
  Sex: Male

DRUGS (1)
  1. PREDNISOLONE. [Suspect]
     Active Substance: PREDNISOLONE
     Indication: POLYMYALGIA RHEUMATICA
     Dosage: STRENGTH: 5 MG
     Route: 048

REACTIONS (13)
  - Gait disturbance [Unknown]
  - Toothache [Unknown]
  - Musculoskeletal pain [Unknown]
  - Arthralgia [Unknown]
  - Oropharyngeal pain [Unknown]
  - Chest pain [Unknown]
  - Tenderness [Unknown]
  - Gingival pain [Unknown]
  - Dysstasia [Unknown]
  - Pain of skin [Unknown]
  - Pain in extremity [Unknown]
  - Abdominal pain [Unknown]
  - Neck pain [Unknown]
